FAERS Safety Report 15358551 (Version 2)
Quarter: 2018Q3

REPORT INFORMATION
  Report Type: Report from Study
  Country: BR (occurrence: BR)
  Receive Date: 20180906
  Receipt Date: 20180912
  Transmission Date: 20181010
  Serious: Yes (Death, Hospitalization)
  Sender: FDA-Public Use
  Company Number: PHHY2018BR092191

PATIENT
  Sex: Female
  Weight: 72 kg

DRUGS (3)
  1. ENTRESTO [Suspect]
     Active Substance: SACUBITRIL\VALSARTAN
     Indication: CARDIOPULMONARY FAILURE
     Dosage: 2 DF, QD
     Route: 048
     Dates: start: 201801, end: 20180703
  2. SOMALGIN CARDIO [Concomitant]
     Active Substance: ASPIRIN\DIHYDROXYALUMINUM AMINOACETATE ANHYDROUS\MAGNESIUM CARBONATE
     Indication: CARDIAC FAILURE
     Dosage: 1 DF, QD
     Route: 048
     Dates: start: 201801, end: 20180703
  3. BICONCOR [Concomitant]
     Active Substance: BISOPROLOL FUMARATE\HYDROCHLOROTHIAZIDE
     Indication: HYPERTENSION
     Dosage: 1 DF, QD (STARTED MORE THAN 20 YEARS AGO)
     Route: 048
     Dates: end: 20180703

REACTIONS (4)
  - Generalised oedema [Fatal]
  - Renal failure [Fatal]
  - Inappropriate schedule of drug administration [Unknown]
  - Cardiac failure [Fatal]
